FAERS Safety Report 20818744 (Version 1)
Quarter: 2022Q2

REPORT INFORMATION
  Report Type: Spontaneous
  Country: US (occurrence: US)
  Receive Date: 20220512
  Receipt Date: 20220512
  Transmission Date: 20220721
  Serious: No
  Sender: FDA-Public Use
  Company Number: US-BRISTOL-MYERS SQUIBB COMPANY-2022-021750

PATIENT
  Sex: Female

DRUGS (1)
  1. ELIQUIS [Suspect]
     Active Substance: APIXABAN
     Indication: Abdominoplasty
     Dosage: DOSE : (1) TABLET;     FREQ : TWICE DAILY
     Route: 048
     Dates: start: 20220406, end: 20220409

REACTIONS (8)
  - Treatment noncompliance [Unknown]
  - Arthralgia [Unknown]
  - Dizziness [Unknown]
  - Sinus headache [Unknown]
  - Pain [Unknown]
  - Off label use [Unknown]
  - Vertigo [Unknown]
  - Migraine [Unknown]

NARRATIVE: CASE EVENT DATE: 20220401
